FAERS Safety Report 21650511 (Version 1)
Quarter: 2022Q4

REPORT INFORMATION
  Report Type: Spontaneous
  Country: US (occurrence: None)
  Receive Date: 20221124
  Receipt Date: 20221124
  Transmission Date: 20230113
  Serious: No
  Sender: FDA-Public Use
  Company Number: None

PATIENT
  Age: 34 Year
  Sex: Male
  Weight: 87.75 kg

DRUGS (1)
  1. LISTERINE TOTAL CARE [Suspect]
     Active Substance: SODIUM FLUORIDE
     Indication: Dental disorder prophylaxis

REACTIONS (3)
  - Tongue injury [None]
  - Tongue discomfort [None]
  - Tongue haemorrhage [None]

NARRATIVE: CASE EVENT DATE: 20221113
